FAERS Safety Report 5752840-4 (Version None)
Quarter: 2008Q2

REPORT INFORMATION
  Report Type: 
  Country: None (occurrence: None)
  Receive Date: 20080529
  Receipt Date: 20080521
  Transmission Date: 20081010
  Serious: Yes (Other)
  Sender: FDA-Public Use
  Company Number: US-PFIZER INC-2008043989

PATIENT

DRUGS (1)
  1. CLEOCIN PHOSPHATE S.S. SOLUTION, STERILE [Suspect]
     Indication: STAPHYLOCOCCAL INFECTION
     Route: 042

REACTIONS (1)
  - HYPERPHOSPHATAEMIA [None]
